FAERS Safety Report 12558785 (Version 1)
Quarter: 2016Q3

REPORT INFORMATION
  Report Type: Spontaneous
  Country: US (occurrence: US)
  Receive Date: 20160715
  Receipt Date: 20160715
  Transmission Date: 20161109
  Serious: No
  Sender: FDA-Public Use
  Company Number: US-JNJFOC-20160624325

PATIENT
  Age: 83 Year
  Sex: Female
  Weight: 52.16 kg

DRUGS (2)
  1. IMODIUM [Suspect]
     Active Substance: LOPERAMIDE HYDROCHLORIDE
     Indication: COLITIS
     Dosage: DOSE: INITIALLY 2 CAPLETS THEN TAKES ONE AFTER AS DIRECTED ON BOX FOR 3 YEARS
     Route: 048
  2. IMODIUM [Suspect]
     Active Substance: LOPERAMIDE HYDROCHLORIDE
     Route: 048

REACTIONS (3)
  - Product use issue [Unknown]
  - Product size issue [Unknown]
  - Off label use [Unknown]
